FAERS Safety Report 8158892-9 (Version None)
Quarter: 2012Q1

REPORT INFORMATION
  Report Type: 
  Country: None (occurrence: None)
  Receive Date: 20120217
  Receipt Date: 20120202
  Transmission Date: 20120608
  Serious: Yes (Hospitalization)
  Sender: FDA-Public Use
  Company Number: 2012S1000007

PATIENT
  Age: 54 Year
  Sex: Male
  Weight: 97.5234 kg

DRUGS (10)
  1. ULORIC [Concomitant]
  2. CLARITIN /00917501/ [Concomitant]
  3. BENADRYL /00945501/ [Concomitant]
  4. KRYSTEXXA [Suspect]
     Indication: GOUT
     Dosage: 8 MG;QOW;IV
     Route: 042
     Dates: start: 20110720, end: 20120120
  5. SOLU-MEDROL [Concomitant]
  6. MULTIVITAMIN /00097801/ [Concomitant]
  7. COLCHICINE [Concomitant]
  8. IBUPROFEN [Concomitant]
  9. TYLENOL (CAPLET) [Concomitant]
  10. ERGOCALCIFEROL [Concomitant]

REACTIONS (3)
  - FALL [None]
  - CONTUSION [None]
  - THERAPEUTIC RESPONSE DECREASED [None]
